FAERS Safety Report 20174210 (Version 1)
Quarter: 2021Q4

REPORT INFORMATION
  Report Type: Spontaneous
  Country: US (occurrence: US)
  Receive Date: 20211213
  Receipt Date: 20211213
  Transmission Date: 20220303
  Serious: No
  Sender: FDA-Public Use
  Company Number: US-TEVA-2021-US-1983928

PATIENT
  Age: 43 Year
  Sex: Female

DRUGS (2)
  1. AMPHETAMINE\DEXTROAMPHETAMINE [Suspect]
     Active Substance: AMPHETAMINE\DEXTROAMPHETAMINE
     Dosage: 60 MILLIGRAM DAILY; 60 MG DAILY A FEW YEARS AGO AND HER DOCTOR
     Route: 065
  2. AMPHETAMINE\DEXTROAMPHETAMINE [Suspect]
     Active Substance: AMPHETAMINE\DEXTROAMPHETAMINE
     Dosage: 70 MILLIGRAM DAILY; TWO 20 MG TABLETS AND ONE 10 MG TABLET DAILY
     Route: 065

REACTIONS (3)
  - Movement disorder [Not Recovered/Not Resolved]
  - Prescribed overdose [Unknown]
  - Tic [Not Recovered/Not Resolved]
